FAERS Safety Report 24680862 (Version 1)
Quarter: 2024Q4

REPORT INFORMATION
  Report Type: Spontaneous
  Country: US (occurrence: US)
  Receive Date: 20241129
  Receipt Date: 20241129
  Transmission Date: 20250115
  Serious: No
  Sender: SANOFI AVENTIS
  Company Number: US-SA-2024SA346844

PATIENT
  Age: 45 Year
  Sex: Male
  Weight: 72.73 kg

DRUGS (1)
  1. DUPIXENT [Suspect]
     Active Substance: DUPILUMAB
     Indication: Dermatitis atopic
     Dosage: 300 MG
     Route: 065
     Dates: start: 20241015

REACTIONS (7)
  - Pain [Unknown]
  - Joint stiffness [Unknown]
  - Loss of personal independence in daily activities [Unknown]
  - Neck pain [Unknown]
  - Back pain [Unknown]
  - Headache [Unknown]
  - Arthralgia [Unknown]

NARRATIVE: CASE EVENT DATE: 20241105
